FAERS Safety Report 7700861-4 (Version None)
Quarter: 2011Q3

REPORT INFORMATION
  Report Type: 
  Country: None (occurrence: None)
  Receive Date: 20110822
  Receipt Date: 20110808
  Transmission Date: 20111222
  Serious: Yes (Hospitalization, Other)
  Sender: FDA-Public Use
  Company Number: PHHY2011BR71842

PATIENT
  Sex: Female

DRUGS (5)
  1. SIMAVASTATIN [Suspect]
     Indication: CARDIAC DISORDER
     Dosage: 1 DF, DAILY
  2. OMEPRAZOLE [Suspect]
     Dosage: 2 DF, DAILY
  3. ENALAPRIL MALEATE [Suspect]
     Indication: HYPERTENSION
     Dosage: 2 TABLETS OF 20 MG ENALAPRIL, DAILY
  4. ASPIRIN [Suspect]
     Indication: ANTICOAGULANT THERAPY
     Dosage: 2 TABLETS AFTER LUNCH
  5. DIOVAN [Suspect]
     Indication: HYPERTENSION
     Dosage: 320 MG VALSARTAN, DAILY

REACTIONS (4)
  - GAIT DISTURBANCE [None]
  - ABDOMINAL HERNIA [None]
  - PNEUMONIA [None]
  - GASTROINTESTINAL NEOPLASM [None]
